FAERS Safety Report 14045691 (Version 1)
Quarter: 2017Q4

REPORT INFORMATION
  Report Type: Spontaneous
  Country: NO (occurrence: NO)
  Receive Date: 20171005
  Receipt Date: 20171005
  Transmission Date: 20180321
  Serious: Yes (Hospitalization)
  Sender: FDA-Public Use
  Company Number: NO-009507513-1710NOR000836

PATIENT
  Age: 73 Year
  Sex: Female

DRUGS (11)
  1. IMOVANE [Concomitant]
     Active Substance: ZOPICLONE
     Dosage: AS NECCESSARY
  2. LISINOPRIL. [Concomitant]
     Active Substance: LISINOPRIL
     Dosage: 5 MG, QD
  3. TRAMADOL HYDROCHLORIDE. [Concomitant]
     Active Substance: TRAMADOL HYDROCHLORIDE
     Dosage: 50-100 MG UP TO 4 TIMES A DAY
  4. FENTANYL. [Concomitant]
     Active Substance: FENTANYL
     Dosage: 25 MICROGRAMS/HOUR
     Route: 062
  5. PARACET [Concomitant]
     Active Substance: ACETAMINOPHEN
     Dosage: 1 G, QID
  6. DUPHALAC [Concomitant]
     Active Substance: LACTULOSE
     Dosage: 667 MG/ML
  7. AFIPRAN [Concomitant]
     Active Substance: METOCLOPRAMIDE HYDROCHLORIDE
     Dosage: AS NECCESSARY
  8. ADALAT [Concomitant]
     Active Substance: NIFEDIPINE
     Dosage: 60 MG, QD
  9. NICOTINELL [Concomitant]
     Active Substance: NICOTINE
     Dosage: 21 MG/24 HOURS
     Route: 062
  10. ANORO ELLIPTA [Concomitant]
     Active Substance: UMECLIDINIUM BROMIDE\VILANTEROL TRIFENATATE
     Dosage: 55 MICROGRAMS UMECLIDINUM BROMIDE/22MICROGRAMS VILANTEROL
  11. PEMBROLIZUMAB. [Suspect]
     Active Substance: PEMBROLIZUMAB
     Indication: LUNG NEOPLASM MALIGNANT
     Dosage: 2 MG/KG, UNK
     Dates: start: 20170607, end: 20170628

REACTIONS (1)
  - Large intestine perforation [Recovering/Resolving]

NARRATIVE: CASE EVENT DATE: 20170713
